FAERS Safety Report 10144629 (Version 2)
Quarter: 2014Q2

REPORT INFORMATION
  Report Type: Spontaneous
  Country: US (occurrence: US)
  Receive Date: 20140430
  Receipt Date: 20140508
  Transmission Date: 20141212
  Serious: Yes (Hospitalization, Other)
  Sender: FDA-Public Use
  Company Number: US-009507513-1404USA015503

PATIENT
  Sex: Male

DRUGS (5)
  1. REBETOL [Suspect]
     Indication: HEPATITIS C
     Dosage: 2 IN AM, 3 IN PM (TWICE A DAY)
     Route: 048
     Dates: start: 20000107, end: 20001007
  2. REBETOL [Suspect]
     Dosage: BID
     Route: 048
     Dates: start: 20030606, end: 20040305
  3. REBETOL [Suspect]
     Dosage: 200 MG TABLETS, 3 TABLETS BID
     Route: 048
     Dates: start: 20070105, end: 20080208
  4. PEGINTERFERON ALFA-2B [Suspect]
     Indication: HEPATITIS C
     Route: 065
  5. PEGINTERFERON ALFA-2B [Suspect]
     Dosage: 150 MICROGRAM, ONCE A WEEK
     Route: 058
     Dates: start: 20070105, end: 20080208

REACTIONS (13)
  - Abdominal operation [Unknown]
  - Hepatitis C [Unknown]
  - Therapeutic response decreased [Unknown]
  - Folliculitis [Unknown]
  - Blood disorder [Unknown]
  - Wound [Unknown]
  - Drug ineffective [Unknown]
  - Skin disorder [Unknown]
  - Abnormal behaviour [Unknown]
  - Anger [Unknown]
  - Memory impairment [Unknown]
  - Drug ineffective [Unknown]
  - Therapeutic response decreased [Unknown]
